FAERS Safety Report 9523130 (Version 2)
Quarter: 2015Q1

REPORT INFORMATION
  Report Type: Spontaneous
  Country: US (occurrence: US)
  Receive Date: 20130913
  Receipt Date: 20150212
  Transmission Date: 20150721
  Serious: Yes (Hospitalization)
  Sender: FDA-Public Use
  Company Number: US-AMGEN-USASP2013064414

PATIENT
  Age: 55 Year
  Sex: Female

DRUGS (3)
  1. ENBREL [Suspect]
     Active Substance: ETANERCEPT
     Dosage: UNK
     Route: 065
  2. INSULIN [Concomitant]
     Active Substance: INSULIN NOS
     Indication: DIABETES MELLITUS
     Dosage: UNK
  3. ENBREL [Suspect]
     Active Substance: ETANERCEPT
     Indication: RHEUMATOID ARTHRITIS
     Dosage: 50 MG, QWK
     Route: 065
     Dates: start: 20060801

REACTIONS (25)
  - Dysstasia [Not Recovered/Not Resolved]
  - Sleep disorder [Recovered/Resolved]
  - Vomiting [Recovered/Resolved]
  - Joint range of motion decreased [Not Recovered/Not Resolved]
  - Road traffic accident [Recovered/Resolved]
  - Bone pain [Recovered/Resolved]
  - Feeling abnormal [Recovered/Resolved]
  - Asthma [Recovered/Resolved]
  - Pain in extremity [Not Recovered/Not Resolved]
  - Grip strength decreased [Not Recovered/Not Resolved]
  - Injection site pain [Not Recovered/Not Resolved]
  - Influenza [Recovered/Resolved]
  - Breast cancer [Recovered/Resolved]
  - Arthralgia [Not Recovered/Not Resolved]
  - Diarrhoea [Recovered/Resolved]
  - Limb injury [Recovered/Resolved]
  - Wound [Recovered/Resolved]
  - Infection [Not Recovered/Not Resolved]
  - Bedridden [Recovered/Resolved]
  - Cough [Recovered/Resolved]
  - Mobility decreased [Not Recovered/Not Resolved]
  - Bone disorder [Not Recovered/Not Resolved]
  - Osteoarthritis [Not Recovered/Not Resolved]
  - Foot deformity [Not Recovered/Not Resolved]
  - Musculoskeletal disorder [Not Recovered/Not Resolved]

NARRATIVE: CASE EVENT DATE: 2006
